FAERS Safety Report 8069518-7 (Version None)
Quarter: 2012Q1

REPORT INFORMATION
  Report Type: 
  Country: None (occurrence: None)
  Receive Date: 20120125
  Receipt Date: 20120118
  Transmission Date: 20120608
  Serious: Yes (Other)
  Sender: FDA-Public Use
  Company Number: DE-JNJFOC-20120107072

PATIENT
  Age: 8 Decade
  Sex: Male

DRUGS (1)
  1. ITRACONAZOLE [Suspect]
     Indication: PRODUCT USED FOR UNKNOWN INDICATION
     Route: 048

REACTIONS (4)
  - PHARYNGEAL OEDEMA [None]
  - WEIGHT INCREASED [None]
  - DYSPNOEA [None]
  - FLUID RETENTION [None]
